FAERS Safety Report 9030395 (Version 2)
Quarter: 2013Q1

REPORT INFORMATION
  Report Type: Report from Study
  Country: NZ (occurrence: NZ)
  Receive Date: 20130122
  Receipt Date: 20130201
  Transmission Date: 20140127
  Serious: Yes (Hospitalization)
  Sender: FDA-Public Use
  Company Number: NZ-ROCHE-1174808

PATIENT
  Age: 26 Year
  Sex: Female
  Weight: 56.9 kg

DRUGS (5)
  1. TRASTUZUMAB [Suspect]
     Indication: BREAST CANCER
     Dosage: DATE OF LAST DOSE ADMINISTERED:20/DEC/2012
     Route: 042
     Dates: start: 20121220, end: 20130103
  2. PACLITAXEL [Suspect]
     Indication: BREAST CANCER
     Dosage: DATE OF LAST DOSE ADMINISTERED:27/DEC/2012
     Route: 042
     Dates: start: 20121220, end: 20130103
  3. ONDANSETRON [Concomitant]
     Route: 065
     Dates: start: 201208
  4. DEXAMETHASON [Concomitant]
     Route: 065
     Dates: start: 201208
  5. PLACEBO [Suspect]
     Indication: BREAST CANCER
     Dosage: DATE OF LAST DOSE ADMINISTERED:20/DEC/2012
     Route: 042
     Dates: start: 20121220, end: 20130103

REACTIONS (1)
  - Acute coronary syndrome [Not Recovered/Not Resolved]
